FAERS Safety Report 25966877 (Version 2)
Quarter: 2025Q4

REPORT INFORMATION
  Report Type: Spontaneous
  Country: US (occurrence: None)
  Receive Date: 20251028
  Receipt Date: 20251215
  Transmission Date: 20260118
  Serious: No
  Sender: UCB
  Company Number: US-UCBSA-2025035915

PATIENT
  Age: 37 Year
  Weight: 70.748 kg

DRUGS (1)
  1. BIMZELX [Suspect]
     Active Substance: BIMEKIZUMAB-BKZX
     Indication: Ankylosing spondylitis
     Dosage: 160 MILLIGRAM, EV 4 WEEKS

REACTIONS (6)
  - Fatigue [Unknown]
  - Neck pain [Unknown]
  - Nasopharyngitis [Unknown]
  - Sinus disorder [Unknown]
  - Illness [Unknown]
  - Product dose omission issue [Unknown]
